FAERS Safety Report 11004156 (Version 2)
Quarter: 2015Q2

REPORT INFORMATION
  Report Type: Spontaneous
  Country: CA (occurrence: CA)
  Receive Date: 20150409
  Receipt Date: 20150609
  Transmission Date: 20150821
  Serious: Yes (Disabling, Other)
  Sender: FDA-Public Use
  Company Number: CA-ABBVIE-15P-028-1372615-00

PATIENT
  Age: 43 Year
  Sex: Female
  Weight: 83.99 kg

DRUGS (3)
  1. MEDROXYPROGESTERONE [Concomitant]
     Active Substance: MEDROXYPROGESTERONE
     Indication: PRODUCT USED FOR UNKNOWN INDICATION
     Route: 048
     Dates: start: 20140812
  2. LUPRON DEPOT [Suspect]
     Active Substance: LEUPROLIDE ACETATE
     Indication: ENDOMETRIOSIS
     Route: 030
     Dates: start: 20140812, end: 20140910
  3. ESTRACE [Concomitant]
     Active Substance: ESTRADIOL
     Indication: PRODUCT USED FOR UNKNOWN INDICATION
     Route: 048
     Dates: start: 20140812

REACTIONS (5)
  - Dizziness [Recovered/Resolved]
  - Menorrhagia [Unknown]
  - Haemorrhage [Recovered/Resolved]
  - Headache [Recovered/Resolved]
  - Breast pain [Not Recovered/Not Resolved]
